APPROVED DRUG PRODUCT: PHENTERMINE HYDROCHLORIDE
Active Ingredient: PHENTERMINE HYDROCHLORIDE
Strength: 15MG
Dosage Form/Route: CAPSULE;ORAL
Application: A087022 | Product #002
Applicant: LANNETT CO INC
Approved: Jan 20, 2012 | RLD: No | RS: No | Type: DISCN